FAERS Safety Report 12661521 (Version 1)
Quarter: 2016Q3

REPORT INFORMATION
  Report Type: Spontaneous
  Country: US (occurrence: US)
  Receive Date: 20160817
  Receipt Date: 20160817
  Transmission Date: 20161109
  Serious: No
  Sender: FDA-Public Use
  Company Number: US-PFIZER INC-2016385945

PATIENT
  Sex: Female

DRUGS (3)
  1. DESOXIMETASONE. [Suspect]
     Active Substance: DESOXIMETASONE
     Indication: VAGINAL INFECTION
     Dosage: UNK
  2. BACITRACIN. [Suspect]
     Active Substance: BACITRACIN
     Indication: VAGINAL INFECTION
     Dosage: UNK
  3. MUPIROCIN. [Suspect]
     Active Substance: MUPIROCIN
     Indication: VAGINAL INFECTION
     Dosage: UNK

REACTIONS (3)
  - Pollakiuria [Unknown]
  - Cystitis interstitial [Unknown]
  - Off label use [Unknown]
